FAERS Safety Report 12602523 (Version 1)
Quarter: 2016Q3

REPORT INFORMATION
  Report Type: Spontaneous
  Country: US (occurrence: None)
  Receive Date: 20160727
  Receipt Date: 20160727
  Transmission Date: 20161109
  Serious: No
  Sender: FDA-Public Use
  Company Number: None

PATIENT
  Sex: Female

DRUGS (18)
  1. TEMAZEPAM. [Concomitant]
     Active Substance: TEMAZEPAM
  2. MULTIVITAMIN [Concomitant]
     Active Substance: VITAMINS
  3. POLYETHYLENE GLYCOL 3350. [Concomitant]
     Active Substance: POLYETHYLENE GLYCOL 3350
  4. ASCORBIC ACID. [Concomitant]
     Active Substance: ASCORBIC ACID
  5. ENOXAPARIN [Concomitant]
     Active Substance: ENOXAPARIN
  6. DOCUSATE [Concomitant]
     Active Substance: DOCUSATE
  7. HYDROMORPHONE [Concomitant]
     Active Substance: HYDROMORPHONE
  8. MIRTAZAPINE. [Concomitant]
     Active Substance: MIRTAZAPINE
  9. VANCOMYCIN [Concomitant]
     Active Substance: VANCOMYCIN
  10. METHADONE [Suspect]
     Active Substance: METHADONE HYDROCHLORIDE
     Indication: PAIN
     Route: 048
     Dates: start: 20160615
  11. EHTACRYNIC ACID [Concomitant]
  12. METRONIDAZOLE. [Concomitant]
     Active Substance: METRONIDAZOLE
  13. LEVOFLOXACIN. [Suspect]
     Active Substance: LEVOFLOXACIN
     Route: 048
  14. ATOVAQUONE. [Concomitant]
     Active Substance: ATOVAQUONE
  15. DEXAMETHASONE. [Concomitant]
     Active Substance: DEXAMETHASONE
  16. LANSOPRAZOLE. [Concomitant]
     Active Substance: LANSOPRAZOLE
  17. PROCHLORPERAZINE. [Concomitant]
     Active Substance: PROCHLORPERAZINE
  18. SENNA [Concomitant]
     Active Substance: SENNA LEAF\SENNOSIDES\SENNOSIDES A AND B

REACTIONS (1)
  - Electrocardiogram QT prolonged [None]

NARRATIVE: CASE EVENT DATE: 20160620
